FAERS Safety Report 7779667-6 (Version None)
Quarter: 2011Q3

REPORT INFORMATION
  Report Type: 
  Country: None (occurrence: None)
  Receive Date: 20110927
  Receipt Date: 20101111
  Transmission Date: 20111222
  Serious: Yes (Other)
  Sender: FDA-Public Use
  Company Number: US-BAYER-200827428NA

PATIENT
  Age: 57 Year
  Sex: Male
  Weight: 83.9 kg

DRUGS (20)
  1. OMNISCAN [Suspect]
     Dosage: UNK, ONCE
     Dates: start: 19990615, end: 19990615
  2. SOLU-MEDROL [Concomitant]
  3. ZOLOFT [Concomitant]
  4. TISSUE PLASMINOGEN ACTIVATOR [Concomitant]
  5. PREDNISONE [Concomitant]
  6. MAGNEVIST [Suspect]
     Indication: NUCLEAR MAGNETIC RESONANCE IMAGING
     Dosage: 14 ML, ONCE
     Dates: start: 20010226, end: 20010226
  7. BUMETANIDE [Concomitant]
  8. GADOLINIUM IN UNSPECIFIED DRUG [Suspect]
     Indication: ANGIOGRAM
     Dosage: UNK UNK, ONCE
     Dates: start: 19990611, end: 19990611
  9. NEPHROVITE [VIT C,VIT H,B5,B12,B9,B3,B6,B2,B1 HCL] [Concomitant]
  10. OMNISCAN [Suspect]
     Indication: VENOGRAM RENAL
     Dosage: UNK UNK, ONCE
     Dates: start: 19990612, end: 19990612
  11. LASIX [Concomitant]
  12. EPO [Concomitant]
  13. OMNISCAN [Suspect]
     Dosage: 15 ML, ONCE
     Dates: start: 19990613, end: 19990613
  14. PROHANCE [Suspect]
     Indication: NUCLEAR MAGNETIC RESONANCE IMAGING
  15. HEPARIN [Concomitant]
  16. CALCIUM GLUCONATE [Concomitant]
  17. ELAVIL [Concomitant]
  18. MULTIHANCE [Suspect]
     Indication: NUCLEAR MAGNETIC RESONANCE IMAGING
  19. OPTIMARK [Suspect]
     Indication: NUCLEAR MAGNETIC RESONANCE IMAGING
  20. PHOSLO [Concomitant]

REACTIONS (15)
  - PANIC DISORDER [None]
  - PAIN [None]
  - JOINT CONTRACTURE [None]
  - ANXIETY [None]
  - SKIN HYPERTROPHY [None]
  - RASH [None]
  - MOBILITY DECREASED [None]
  - NEPHROGENIC SYSTEMIC FIBROSIS [None]
  - SCAR [None]
  - FIBROSIS [None]
  - DEPRESSION [None]
  - ASOCIAL BEHAVIOUR [None]
  - PARANOIA [None]
  - SKIN INDURATION [None]
  - ABASIA [None]
